FAERS Safety Report 5230595-X (Version None)
Quarter: 2007Q1

REPORT INFORMATION
  Report Type: 
  Country: None (occurrence: None)
  Receive Date: 20070206
  Receipt Date: 20070131
  Transmission Date: 20070707
  Serious: Yes (Hospitalization)
  Sender: FDA-Public Use
  Company Number: GB-GLAXOSMITHKLINE-B0359442A

PATIENT
  Age: 30 Year
  Sex: Female

DRUGS (5)
  1. SEROXAT [Suspect]
     Indication: DEPRESSION
     Route: 048
     Dates: start: 20001103, end: 20020101
  2. BUSPIRONE HCL [Concomitant]
     Route: 065
     Dates: start: 20010306, end: 20010713
  3. TEMAZEPAM [Concomitant]
     Route: 065
     Dates: start: 20010306, end: 20010713
  4. VENLAFAXINE HCL [Concomitant]
     Dosage: 75MG PER DAY
     Route: 065
     Dates: start: 20010806, end: 20020601
  5. ZOLPIDEM TARTRATE [Concomitant]
     Dosage: 10MCG AT NIGHT
     Route: 065
     Dates: start: 20010806

REACTIONS (7)
  - ANXIETY [None]
  - COMPLETED SUICIDE [None]
  - DISTURBANCE IN ATTENTION [None]
  - DRUG WITHDRAWAL SYNDROME [None]
  - OVERDOSE [None]
  - SUICIDAL IDEATION [None]
  - SUICIDE ATTEMPT [None]
